FAERS Safety Report 6814832-3 (Version None)
Quarter: 2010Q2

REPORT INFORMATION
  Report Type: 
  Country: None (occurrence: None)
  Receive Date: 20100628
  Receipt Date: 20100611
  Transmission Date: 20101027
  Serious: Yes (Hospitalization)
  Sender: FDA-Public Use
  Company Number: 2010AM002401

PATIENT
  Age: 70 Year
  Sex: Female

DRUGS (2)
  1. SYMLIN [Suspect]
     Indication: DRUG USE FOR UNKNOWN INDICATION
     Dosage: ; SC
     Route: 058
     Dates: start: 20100210, end: 20100225
  2. SYMLIN [Suspect]
     Indication: DRUG USE FOR UNKNOWN INDICATION
     Dosage: ; SC
     Route: 058
     Dates: start: 20100601

REACTIONS (4)
  - DRUG INEFFECTIVE [None]
  - FOOT OPERATION [None]
  - SURGERY [None]
  - TREMOR [None]
